FAERS Safety Report 24308984 (Version 1)
Quarter: 2024Q3

REPORT INFORMATION
  Report Type: Spontaneous
  Country: NL (occurrence: NL)
  Receive Date: 20240911
  Receipt Date: 20240911
  Transmission Date: 20241017
  Serious: Yes (Other)
  Sender: TEVA
  Company Number: None

PATIENT
  Age: 50 Year
  Sex: Female
  Weight: 68 kg

DRUGS (2)
  1. DICLOFENAC [Suspect]
     Active Substance: DICLOFENAC
     Indication: Pain prophylaxis
     Dosage: 1PILL; DICLOFENAC SODIUM TABLET MSR / BRAND NAME NOT SPECIFIED
     Route: 065
     Dates: start: 20240802, end: 20240802
  2. ACETAMINOPHEN [Concomitant]
     Active Substance: ACETAMINOPHEN
     Indication: Product used for unknown indication
     Dosage: MELTING TABLET; PARACETAMOL MELTING TABLET / BRAND NAME NOT SPECIFIED
     Route: 065

REACTIONS (4)
  - Syncope [Recovering/Resolving]
  - Chest pain [Recovering/Resolving]
  - Vomiting [Recovering/Resolving]
  - Musculoskeletal stiffness [Recovering/Resolving]
